FAERS Safety Report 9291280 (Version 1)
Quarter: 2013Q2

REPORT INFORMATION
  Report Type: Spontaneous
  Country: GB (occurrence: None)
  Receive Date: 20130513
  Receipt Date: 20130513
  Transmission Date: 20140414
  Serious: Yes (Life-Threatening, Hospitalization)
  Sender: FDA-Public Use
  Company Number: DKLU1090802

PATIENT
  Age: 1 Year
  Sex: Male

DRUGS (4)
  1. COSMEGEN [Suspect]
     Indication: NEPHROBLASTOMA
     Dosage: INTRAVENOUS (NOT OTHERWISE SPECIFIED)
     Route: 042
     Dates: start: 20130326, end: 20130408
  2. AMLODIPINE (AMLODIPINE) [Concomitant]
  3. CODEINE (CODEINE) [Concomitant]
  4. VINCRISTINE (VINCRISTINE) [Concomitant]

REACTIONS (4)
  - Venoocclusive liver disease [None]
  - Haemoglobin decreased [None]
  - Platelet count decreased [None]
  - Lethargy [None]
